FAERS Safety Report 12874567 (Version 3)
Quarter: 2016Q4

REPORT INFORMATION
  Report Type: Report from Study
  Country: US (occurrence: US)
  Receive Date: 20161021
  Receipt Date: 20161111
  Transmission Date: 20170207
  Serious: Yes (Other)
  Sender: FDA-Public Use
  Company Number: US-AMGEN-USASL2016143588

PATIENT
  Age: 74 Year
  Sex: Female

DRUGS (1)
  1. REPATHA [Suspect]
     Active Substance: EVOLOCUMAB
     Indication: HYPERCHOLESTEROLAEMIA
     Dosage: 420 MG/3.5 ML, QMO
     Route: 065

REACTIONS (8)
  - Epistaxis [Unknown]
  - Diarrhoea [Not Recovered/Not Resolved]
  - Feeling abnormal [Unknown]
  - Local swelling [Not Recovered/Not Resolved]
  - Memory impairment [Unknown]
  - Dyspepsia [Not Recovered/Not Resolved]
  - Visual acuity reduced [Unknown]
  - Nausea [Unknown]

NARRATIVE: CASE EVENT DATE: 201610
